FAERS Safety Report 9401229 (Version 2)
Quarter: 2013Q3

REPORT INFORMATION
  Report Type: Spontaneous
  Country: US (occurrence: US)
  Receive Date: 20130715
  Receipt Date: 20130806
  Transmission Date: 20140515
  Serious: Yes (Other)
  Sender: FDA-Public Use
  Company Number: US-GILEAD-2013-0078938

PATIENT
  Sex: Male

DRUGS (4)
  1. LETAIRIS [Suspect]
     Indication: PULMONARY ARTERIAL HYPERTENSION
     Dosage: 5 MG, UNK
     Route: 048
     Dates: start: 20121116
  2. LETAIRIS [Suspect]
     Indication: LEFT VENTRICULAR DYSFUNCTION
  3. LETAIRIS [Suspect]
     Indication: SLEEP APNOEA SYNDROME
  4. LETAIRIS [Suspect]
     Indication: CATHETERISATION CARDIAC

REACTIONS (1)
  - Dialysis [Unknown]
